FAERS Safety Report 6188632-4 (Version None)
Quarter: 2009Q2

REPORT INFORMATION
  Report Type: 
  Country: None (occurrence: None)
  Receive Date: 20090513
  Receipt Date: 20090512
  Transmission Date: 20091009
  Serious: Yes (Other)
  Sender: FDA-Public Use
  Company Number: D0061488A

PATIENT
  Sex: Female
  Weight: 65 kg

DRUGS (1)
  1. REQUIP [Suspect]
     Indication: MOBILITY DECREASED
     Route: 048
     Dates: start: 20090406, end: 20090504

REACTIONS (3)
  - DIZZINESS [None]
  - FALL [None]
  - OEDEMA PERIPHERAL [None]
